FAERS Safety Report 26106526 (Version 1)
Quarter: 2025Q4

REPORT INFORMATION
  Report Type: Report from Study
  Country: CN (occurrence: CN)
  Receive Date: 20251201
  Receipt Date: 20251201
  Transmission Date: 20260117
  Serious: Yes (Other)
  Sender: ROCHE
  Company Number: CN-ROCHE-10000443244

PATIENT
  Age: 33 Year
  Sex: Male
  Weight: 93 kg

DRUGS (41)
  1. POLATUZUMAB VEDOTIN [Suspect]
     Active Substance: POLATUZUMAB VEDOTIN
     Indication: Diffuse large B-cell lymphoma
     Route: 042
     Dates: start: 20250226, end: 20250226
  2. CYCLOPHOSPHAMIDE [Suspect]
     Active Substance: CYCLOPHOSPHAMIDE
     Indication: Diffuse large B-cell lymphoma
     Route: 042
     Dates: start: 20250227, end: 20250227
  3. CYCLOPHOSPHAMIDE [Suspect]
     Active Substance: CYCLOPHOSPHAMIDE
     Route: 042
     Dates: start: 20250808, end: 20250808
  4. RITUXIMAB [Suspect]
     Active Substance: RITUXIMAB
     Indication: Diffuse large B-cell lymphoma
     Route: 042
     Dates: start: 20250225, end: 20250225
  5. RITUXIMAB [Suspect]
     Active Substance: RITUXIMAB
     Route: 042
     Dates: start: 20250807, end: 20250807
  6. HYDROCORTISONE SODIUM SUCCINATE [Suspect]
     Active Substance: HYDROCORTISONE SODIUM SUCCINATE
     Indication: Diffuse large B-cell lymphoma
     Route: 042
     Dates: start: 20250227, end: 20250304
  7. PREDNISOLONE [Suspect]
     Active Substance: PREDNISOLONE
     Indication: Diffuse large B-cell lymphoma
     Route: 042
     Dates: start: 20250808, end: 20250813
  8. DOXORUBICIN [Suspect]
     Active Substance: DOXORUBICIN
     Indication: Diffuse large B-cell lymphoma
     Route: 042
     Dates: start: 20250227, end: 20250301
  9. DOXORUBICIN [Suspect]
     Active Substance: DOXORUBICIN
     Route: 042
     Dates: start: 20250808, end: 20250810
  10. VINCRISTINE [Suspect]
     Active Substance: VINCRISTINE
     Indication: Diffuse large B-cell lymphoma
     Route: 042
     Dates: start: 20250808, end: 20250808
  11. METHOTREXATE [Suspect]
     Active Substance: METHOTREXATE
     Indication: Diffuse large B-cell lymphoma
     Route: 042
     Dates: start: 20250811, end: 20250811
  12. Multivitamins (12) [Concomitant]
     Indication: Prophylaxis
     Route: 042
  13. Esomeprazole enteric-coated capsules [Concomitant]
     Indication: Prophylaxis
     Route: 048
  14. Dolasetron mesylate injection (Shi Siyao) [Concomitant]
     Indication: Prophylaxis
     Route: 042
     Dates: end: 20250810
  15. Sodium folinate powder injection [Concomitant]
     Indication: Prophylaxis
     Dates: start: 20250811, end: 20250818
  16. SODIUM BICARBONATE [Concomitant]
     Active Substance: SODIUM BICARBONATE
     Indication: Prophylaxis
     Route: 042
     Dates: start: 20250813, end: 20250815
  17. SODIUM BICARBONATE [Concomitant]
     Active Substance: SODIUM BICARBONATE
     Indication: Prophylaxis
     Route: 042
     Dates: start: 20250826, end: 20250915
  18. DEXAMETHASONE SODIUM PHOSPHATE [Concomitant]
     Active Substance: DEXAMETHASONE SODIUM PHOSPHATE
     Indication: Prophylaxis
     Route: 042
  19. DEXAMETHASONE SODIUM PHOSPHATE [Concomitant]
     Active Substance: DEXAMETHASONE SODIUM PHOSPHATE
     Indication: Prophylaxis
     Route: 042
  20. DEXAMETHASONE SODIUM PHOSPHATE [Concomitant]
     Active Substance: DEXAMETHASONE SODIUM PHOSPHATE
     Indication: Prophylaxis
     Dates: start: 20250827, end: 20250827
  21. DEXAMETHASONE SODIUM PHOSPHATE [Concomitant]
     Active Substance: DEXAMETHASONE SODIUM PHOSPHATE
     Indication: Prophylaxis
     Dates: start: 20250829, end: 20250829
  22. DEXAMETHASONE SODIUM PHOSPHATE [Concomitant]
     Active Substance: DEXAMETHASONE SODIUM PHOSPHATE
     Indication: Prophylaxis
     Dates: start: 20250831, end: 20250831
  23. DEXAMETHASONE SODIUM PHOSPHATE [Concomitant]
     Active Substance: DEXAMETHASONE SODIUM PHOSPHATE
     Indication: Prophylaxis
  24. DEXAMETHASONE SODIUM PHOSPHATE [Concomitant]
     Active Substance: DEXAMETHASONE SODIUM PHOSPHATE
     Indication: Prophylaxis
     Route: 042
     Dates: end: 20250912
  25. DIPHENHYDRAMINE HYDROCHLORIDE [Concomitant]
     Active Substance: DIPHENHYDRAMINE HYDROCHLORIDE
     Indication: Prophylaxis
     Route: 030
  26. DIPHENHYDRAMINE HYDROCHLORIDE [Concomitant]
     Active Substance: DIPHENHYDRAMINE HYDROCHLORIDE
     Indication: Prophylaxis
     Route: 030
     Dates: start: 20250831, end: 20250831
  27. MESNA [Concomitant]
     Active Substance: MESNA
     Indication: Prophylaxis
  28. VITAMIN B6 [Concomitant]
     Active Substance: PYRIDOXINE HYDROCHLORIDE
     Indication: Prophylaxis
     Route: 042
     Dates: start: 20250813, end: 20250815
  29. ASCORBIC ACID [Concomitant]
     Active Substance: ASCORBIC ACID
     Indication: Prophylaxis
     Route: 042
     Dates: start: 20250813, end: 20250815
  30. LINEZOLID [Concomitant]
     Active Substance: LINEZOLID
     Indication: Adverse event
     Route: 042
     Dates: start: 20250829, end: 20250911
  31. Fluconazole sodium chloride injection [Concomitant]
     Indication: Adverse event
     Route: 042
     Dates: start: 20250831, end: 20250912
  32. Magnesium isoglycyrrhizinate injection [Concomitant]
     Indication: Prophylaxis
     Route: 042
  33. Sodium omeprazole for injection [Concomitant]
     Indication: Prophylaxis
     Route: 042
     Dates: end: 20250916
  34. Sodium omeprazole for injection [Concomitant]
     Indication: Prophylaxis
     Route: 042
  35. Cefoperazone sodium and Sulbactam Sodium for injection (Pfizer) [Concomitant]
     Indication: Adverse event
     Route: 042
     Dates: end: 20250915
  36. Potassium chloride injection (plastic ampoule) [Concomitant]
     Indication: Prophylaxis
     Route: 042
     Dates: start: 20250825, end: 20250826
  37. Potassium chloride injection (plastic ampoule) [Concomitant]
     Indication: Prophylaxis
     Route: 042
     Dates: start: 20250831, end: 20250831
  38. Ondansetron hydrochloride (Qilu) tablets [Concomitant]
     Indication: Prophylaxis
     Route: 048
     Dates: start: 20250826, end: 20250826
  39. BICYCLOL [Concomitant]
     Active Substance: BICYCLOL
     Indication: Prophylaxis
     Route: 048
     Dates: end: 20250916
  40. Glutathione for Injection (Chongqing Yaoyou) [Concomitant]
     Indication: Prophylaxis
     Route: 042
     Dates: end: 20250916
  41. Acetaminophen tablets (own preparation) [Concomitant]
     Indication: Prophylaxis
     Route: 048
     Dates: start: 20250913, end: 20250913

REACTIONS (1)
  - Renal failure [Recovered/Resolved]

NARRATIVE: CASE EVENT DATE: 20250813
